FAERS Safety Report 9236194 (Version 1)
Quarter: 2013Q2

REPORT INFORMATION
  Report Type: Spontaneous
  Country: FR (occurrence: FR)
  Receive Date: 20130417
  Receipt Date: 20130417
  Transmission Date: 20140414
  Serious: Yes (Hospitalization, Other)
  Sender: FDA-Public Use
  Company Number: FR-PFIZER INC-2013116860

PATIENT
  Age: 77 Year
  Sex: Male

DRUGS (14)
  1. LYRICA [Suspect]
     Indication: ANALGESIC THERAPY
     Dosage: 300 MG/DAY
     Route: 048
     Dates: start: 200802, end: 201012
  2. LYRICA [Suspect]
     Dosage: UNK
     Route: 048
     Dates: start: 201103, end: 20130312
  3. ALDACTONE [Concomitant]
  4. PARACETAMOL [Concomitant]
  5. PANTOPRAZOLE [Concomitant]
  6. COUMADINE [Concomitant]
  7. CARDENSIEL [Concomitant]
  8. PROCORALAN [Concomitant]
  9. KARDEGIC [Concomitant]
  10. CRESTOR [Concomitant]
  11. TRIATEC [Concomitant]
  12. LASILIX [Concomitant]
  13. FORLAX [Concomitant]
     Dosage: UNK
  14. ALLOPURINOL [Concomitant]

REACTIONS (5)
  - Thrombocytopenia [Recovered/Resolved]
  - Herpes zoster [Unknown]
  - Myocardial ischaemia [Unknown]
  - Erysipelas [Unknown]
  - Pulmonary mass [Unknown]
